FAERS Safety Report 7439664-7 (Version None)
Quarter: 2011Q2

REPORT INFORMATION
  Report Type: 
  Country: None (occurrence: None)
  Receive Date: 20110427
  Receipt Date: 20110413
  Transmission Date: 20111010
  Serious: Yes (Hospitalization)
  Sender: FDA-Public Use
  Company Number: PHFR2011GB02464

PATIENT
  Sex: Male

DRUGS (2)
  1. CLOZARIL [Suspect]
     Indication: SCHIZOPHRENIA
     Dosage: UNK
     Route: 048
     Dates: start: 20100624
  2. CLOZARIL [Suspect]
     Dosage: UNK
     Dates: start: 20110406

REACTIONS (5)
  - ROAD TRAFFIC ACCIDENT [None]
  - ANTIPSYCHOTIC DRUG LEVEL INCREASED [None]
  - FACE INJURY [None]
  - ANAEMIA [None]
  - TACHYCARDIA [None]
